FAERS Safety Report 16831878 (Version 4)
Quarter: 2019Q4

REPORT INFORMATION
  Report Type: Spontaneous
  Country: BR (occurrence: BR)
  Receive Date: 20190920
  Receipt Date: 20191118
  Transmission Date: 20200122
  Serious: Yes (Other)
  Sender: FDA-Public Use
  Company Number: BR-AMGEN-BRASP2013055102

PATIENT
  Age: 74 Year
  Sex: Female
  Weight: 45 kg

DRUGS (17)
  1. FOLIC ACID. [Concomitant]
     Active Substance: FOLIC ACID
     Dosage: UNK
  2. OSSOTRAT-D [Concomitant]
     Dosage: ONE TABLET, TWICE DAILY
     Route: 048
  3. ENBREL [Suspect]
     Active Substance: ETANERCEPT
     Dosage: UNK
     Route: 065
  4. ENBREL [Suspect]
     Active Substance: ETANERCEPT
     Indication: RHEUMATOID ARTHRITIS
     Dosage: 50 MG, ONCE WEEKLY
     Route: 058
     Dates: start: 20130619, end: 201308
  5. CALCIUM [Concomitant]
     Active Substance: CALCIUM
     Dosage: 5 DROPS, QD
  6. METHOTREXATE. [Concomitant]
     Active Substance: METHOTREXATE
     Indication: RHEUMATOID ARTHRITIS
     Dosage: 6 DOSAGE FORM, QWK
     Route: 048
  7. GABAPENTIN. [Concomitant]
     Active Substance: GABAPENTIN
     Dosage: 1 DOSAGE FORM, QD
  8. GLIFAGE [Concomitant]
     Active Substance: METFORMIN HYDROCHLORIDE
     Indication: DIABETES MELLITUS
     Dosage: 500MG, ONCE DAILY
     Route: 048
  9. VITAMIN D [ERGOCALCIFEROL] [Concomitant]
     Active Substance: ERGOCALCIFEROL
     Dosage: 5 DROPS, PER DAY
  10. NIMESULIDE [Concomitant]
     Active Substance: NIMESULIDE
     Dosage: 1 DOSAGE FORM, BID
     Route: 048
  11. CALCIUM CARBONATE, COLECALCIFEROL [Concomitant]
     Active Substance: CALCIUM CARBONATE\CHOLECALCIFEROL
     Dosage: 1 DOSAGE FORM, BID
     Route: 048
  12. VITAMIN D [ERGOCALCIFEROL] [Concomitant]
     Active Substance: ERGOCALCIFEROL
     Indication: VITAMIN SUPPLEMENTATION
     Dosage: 5 DROPS, PER DAY
  13. ENBREL [Suspect]
     Active Substance: ETANERCEPT
     Dosage: 50 MG, WEEKLY (EVERY WEDNESDAY)
     Route: 058
     Dates: start: 201311, end: 2013
  14. ENBREL [Suspect]
     Active Substance: ETANERCEPT
     Dosage: 50 MG, WEEKLY
     Route: 065
     Dates: start: 2013
  15. ERGOCALCIFEROL. [Concomitant]
     Active Substance: ERGOCALCIFEROL
     Indication: VITAMIN SUPPLEMENTATION
     Dosage: 5 GTT DROPS, QD
  16. CODEINE [Concomitant]
     Active Substance: CODEINE
     Dosage: UNK UNK, BID
     Route: 048
  17. METFORMIN HYDROCHLORIDE. [Concomitant]
     Active Substance: METFORMIN HYDROCHLORIDE
     Indication: DIABETES MELLITUS
     Dosage: 500 MILLIGRAM, QD
     Route: 048

REACTIONS (44)
  - Hypoaesthesia [Not Recovered/Not Resolved]
  - Nail discolouration [Not Recovered/Not Resolved]
  - Vision blurred [Unknown]
  - Lacrimation increased [Unknown]
  - Ear discomfort [Not Recovered/Not Resolved]
  - Pain [Unknown]
  - Cataract [Recovered/Resolved]
  - Injection site discolouration [Recovered/Resolved]
  - Herpes zoster [Unknown]
  - Rash papular [Unknown]
  - Palpitations [Unknown]
  - Gait disturbance [Not Recovered/Not Resolved]
  - Onychalgia [Not Recovered/Not Resolved]
  - Memory impairment [Not Recovered/Not Resolved]
  - Weight increased [Unknown]
  - Pain in extremity [Not Recovered/Not Resolved]
  - Eye discharge [Unknown]
  - Urticaria [Unknown]
  - Wound [Recovered/Resolved]
  - Wound complication [Unknown]
  - Skin discolouration [Unknown]
  - Anaemia [Unknown]
  - Condition aggravated [Unknown]
  - Sticky skin [Unknown]
  - Feeling cold [Unknown]
  - Visual impairment [Not Recovered/Not Resolved]
  - Wrong technique in product usage process [Recovered/Resolved]
  - Ear disorder [Unknown]
  - Pruritus [Unknown]
  - Injection site haemorrhage [Recovered/Resolved]
  - Injection site pain [Unknown]
  - Bedridden [Not Recovered/Not Resolved]
  - Limb discomfort [Unknown]
  - Burning sensation [Unknown]
  - Eye pain [Not Recovered/Not Resolved]
  - Arthropathy [Not Recovered/Not Resolved]
  - Product dose omission [Recovered/Resolved]
  - Hypersensitivity [Not Recovered/Not Resolved]
  - Blindness [Not Recovered/Not Resolved]
  - Sleep disorder due to general medical condition, insomnia type [Unknown]
  - Peripheral swelling [Not Recovered/Not Resolved]
  - Eye irritation [Unknown]
  - Headache [Not Recovered/Not Resolved]
  - Sneezing [Recovering/Resolving]

NARRATIVE: CASE EVENT DATE: 2013
